FAERS Safety Report 6259941-5 (Version None)
Quarter: 2009Q3

REPORT INFORMATION
  Report Type: 
  Country: None (occurrence: None)
  Receive Date: 20090706
  Receipt Date: 20090706
  Transmission Date: 20100115
  Serious: Yes (Hospitalization)
  Sender: FDA-Public Use
  Company Number: None

PATIENT
  Age: 63 Year
  Sex: Female
  Weight: 102.2 kg

DRUGS (14)
  1. ABRAXANE [Suspect]
     Indication: BREAST CANCER METASTATIC
     Dosage: 100 MG/M2 WEEKLY IV DRIP
     Route: 041
     Dates: start: 20090617, end: 20090701
  2. TYLENOL [Concomitant]
  3. CRESTOR [Concomitant]
  4. GABAPENTIN [Concomitant]
  5. LASIX [Concomitant]
  6. LOTENSIN [Concomitant]
  7. OXYBUTYNIN CHLORIDE [Concomitant]
  8. TRICOR [Concomitant]
  9. TRAMADOL HCL [Concomitant]
  10. URSO FORTE [Concomitant]
  11. ASPIRIN [Concomitant]
  12. BIOTIN [Concomitant]
  13. NASONEX [Concomitant]
  14. CLARITIN [Concomitant]

REACTIONS (4)
  - CELLULITIS [None]
  - DIARRHOEA [None]
  - ERYTHEMA [None]
  - OEDEMA PERIPHERAL [None]
